FAERS Safety Report 9813298 (Version 2)
Quarter: 2014Q1

REPORT INFORMATION
  Report Type: Spontaneous
  Country: US (occurrence: US)
  Receive Date: 20140113
  Receipt Date: 20140113
  Transmission Date: 20141002
  Serious: No
  Sender: FDA-Public Use
  Company Number: US-BAXTER-2013BAX053311

PATIENT
  Sex: Male

DRUGS (8)
  1. DIANEAL LOW CALCIUM [Suspect]
     Indication: RENAL FAILURE CHRONIC
     Route: 033
     Dates: start: 20120117
  2. DIANEAL LOW CALCIUM [Suspect]
     Route: 033
     Dates: start: 20120117
  3. DIANEAL LOW CALCIUM [Suspect]
     Route: 033
     Dates: start: 20120117
  4. DIANEAL LOW CALCIUM [Suspect]
     Indication: RENAL FAILURE CHRONIC
     Route: 033
     Dates: start: 20120117
  5. DIANEAL LOW CALCIUM [Suspect]
     Route: 033
     Dates: start: 20120117
  6. DIANEAL LOW CALCIUM [Suspect]
     Route: 033
     Dates: start: 20120117
  7. DIANEAL LOW CALCIUM (ULTRABAG) [Suspect]
     Indication: PERITONEAL DIALYSIS
     Route: 033
  8. DIANEAL LOW CALCIUM (ULTRABAG) [Suspect]
     Indication: PERITONEAL DIALYSIS
     Route: 033

REACTIONS (2)
  - Umbilical hernia [Not Recovered/Not Resolved]
  - Dehydration [Recovering/Resolving]
